FAERS Safety Report 9943267 (Version 1)
Quarter: 2014Q1

REPORT INFORMATION
  Report Type: Spontaneous
  Country: US (occurrence: US)
  Receive Date: 20140303
  Receipt Date: 20140303
  Transmission Date: 20141002
  Serious: Yes (Disabling, Other)
  Sender: FDA-Public Use
  Company Number: US-PFIZER INC-2014059195

PATIENT
  Age: 58 Year
  Sex: Male
  Weight: 113.38 kg

DRUGS (2)
  1. VIAGRA [Suspect]
     Indication: ERECTILE DYSFUNCTION
     Dosage: 100 MG, AS NEEDED
     Dates: start: 2005
  2. BISOPROLOL FUMARATE/HYDROCHLOROTHIAZIDE [Concomitant]
     Indication: HYPERTENSION
     Dosage: [BISOPROLOL 5MG/ HYDROCHLOROTHIAZIDE 6.25MG], 1X/DAY

REACTIONS (1)
  - Cardiac disorder [Unknown]
